FAERS Safety Report 8209550-3 (Version None)
Quarter: 2012Q1

REPORT INFORMATION
  Report Type: 
  Country: None (occurrence: None)
  Receive Date: 20120314
  Receipt Date: 20120306
  Transmission Date: 20120608
  Serious: Yes (Other)
  Sender: FDA-Public Use
  Company Number: US-JNJFOC-20120304047

PATIENT
  Age: 27 Year
  Sex: Female
  Weight: 83.46 kg

DRUGS (2)
  1. NEUTROGENA T/GEL THERAPEUTIC SHAMPOO EXTRA STRENGTH FORMULA [Suspect]
     Indication: PRODUCT USED FOR UNKNOWN INDICATION
     Dosage: BETWEEN A DIME AND QUARTER SIZE AMOUNT
     Route: 061
     Dates: end: 20120305
  2. ALL THERAPEUTIC PRODUCTS [Concomitant]
     Route: 065

REACTIONS (1)
  - PSORIASIS [None]
